FAERS Safety Report 5953717-1 (Version None)
Quarter: 2008Q4

REPORT INFORMATION
  Report Type: 
  Country: None (occurrence: None)
  Receive Date: 20081114
  Receipt Date: 20081103
  Transmission Date: 20090506
  Serious: Yes (Hospitalization, Other)
  Sender: FDA-Public Use
  Company Number: US-ROCHE-595022

PATIENT
  Age: 84 Year
  Sex: Male

DRUGS (4)
  1. CEFTRIAXONE [Suspect]
     Indication: DRUG USE FOR UNKNOWN INDICATION
     Route: 042
  2. CEFTRIAXONE [Suspect]
     Route: 042
  3. PIPERACILLIN AND TAZOBACTAM [Suspect]
     Indication: DRUG USE FOR UNKNOWN INDICATION
     Route: 042
  4. PIPERACILLIN AND TAZOBACTAM [Suspect]
     Route: 042

REACTIONS (6)
  - ACCIDENTAL EXPOSURE [None]
  - ADVERSE DRUG REACTION [None]
  - DRUG ERUPTION [None]
  - KLEBSIELLA INFECTION [None]
  - STAPHYLOCOCCAL INFECTION [None]
  - TOXIC EPIDERMAL NECROLYSIS [None]
